FAERS Safety Report 7335658 (Version 3)
Quarter: 2013Q1

REPORT INFORMATION
  Report Type: Report from Study
  Country: JP (occurrence: JP)
  Receive Date: 20100329
  Receipt Date: 20130225
  Transmission Date: 20140127
  Serious: Yes (Death, Hospitalization, Other)
  Sender: FDA-Public Use
  Company Number: PHHY2009JP11765

PATIENT
  Age: 65 Year
  Sex: Male
  Weight: 71 kg

DRUGS (30)
  1. ICL670A [Suspect]
     Indication: IRON OVERLOAD
     Dosage: 1000 MG, DAILY
     Route: 042
     Dates: start: 20080825, end: 20090531
  2. BLOOD TRANSFUSION, AUXILIARY PRODUCTS [Concomitant]
     Dosage: UNK UKN, UNK
     Dates: start: 20070118, end: 20080819
  3. AVELOX [Concomitant]
     Dosage: 400 MG, UNK
     Route: 048
     Dates: start: 20080825
  4. SLOW-K [Concomitant]
     Dosage: 2400 MG, UNK
     Route: 048
     Dates: start: 20080825, end: 20081111
  5. PARIET [Concomitant]
     Dosage: 20 MG, UNK
     Route: 048
     Dates: start: 20080825
  6. VFEND [Concomitant]
     Dosage: 400 MG, UNK
     Route: 048
     Dates: start: 20080825
  7. MEROPEN [Concomitant]
     Dosage: 1 G, UNK
     Route: 042
     Dates: start: 20080825, end: 20080919
  8. BAKTAR [Concomitant]
     Dosage: 2 OT, UNK
     Route: 048
     Dates: start: 20080919
  9. ALLOID [Concomitant]
     Dosage: 40 MG, UNK
     Route: 048
     Dates: start: 20081030
  10. CIPROXAN [Concomitant]
     Dosage: 600 MG, UNK
     Route: 048
     Dates: start: 20081114
  11. ZOSYN [Concomitant]
     Dosage: 18 G, UNK
     Dates: start: 20081216
  12. DALACIN [Concomitant]
     Dosage: 1200 MG, UNK
     Dates: start: 20081031, end: 20081216
  13. VANCOMYCIN [Concomitant]
     Dosage: 1 G, UNK
     Route: 042
     Dates: start: 20081216, end: 20081224
  14. RED BLOOD CELLS, CONCENTRATED [Concomitant]
     Dosage: 2 U, BIW
     Dates: start: 20081025, end: 20090220
  15. PLATELETS, HUMAN BLOOD [Concomitant]
     Dosage: 10 U, UNK
     Dates: start: 20080825, end: 20090226
  16. AZUNOL                             /00517002/ [Concomitant]
     Dosage: UNK UKN, UNK
  17. CALONAL [Concomitant]
     Dosage: UNK UKN, UNK
  18. MYSLEE [Concomitant]
     Dosage: UNK UKN, UNK
  19. GABAPEN [Concomitant]
     Dosage: UNK UKN, UNK
  20. CLINDAMYCIN [Concomitant]
     Dosage: UNK UKN, UNK
  21. TEICOPLANIN [Concomitant]
     Dosage: UNK UKN, UNK
  22. CIPROFLOXACIN HYDROCHLORIDE [Concomitant]
     Dosage: UNK UKN, UNK
  23. CEFEPIME [Concomitant]
     Dosage: UNK UKN, UNK
  24. MEROPENEM [Concomitant]
     Dosage: UNK UKN, UNK
  25. ITRACONAZOLE [Concomitant]
     Dosage: UNK UKN, UNK
  26. AMPHOTERICIN B [Concomitant]
     Dosage: UNK UKN, UNK
  27. VORICONAZOLE [Concomitant]
     Dosage: UNK UKN, UNK
  28. G-CSF [Concomitant]
     Dosage: UNK UKN, UNK
  29. DALACIN-P [Concomitant]
     Dosage: UNK UKN, UNK
  30. FINIBAX [Concomitant]
     Dosage: UNK UKN, UNK

REACTIONS (11)
  - Condition aggravated [Fatal]
  - Myelodysplastic syndrome [Fatal]
  - Lung neoplasm malignant [Fatal]
  - Subarachnoid haemorrhage [Fatal]
  - Pulmonary mycosis [Fatal]
  - Osteomyelitis [Not Recovered/Not Resolved]
  - Blood glucose increased [Not Recovered/Not Resolved]
  - Hepatic function abnormal [Not Recovered/Not Resolved]
  - Renal impairment [Unknown]
  - Pyrexia [Recovered/Resolved]
  - Cellulitis [Recovered/Resolved]
